FAERS Safety Report 6084616-5 (Version None)
Quarter: 2009Q1

REPORT INFORMATION
  Report Type: 
  Country: None (occurrence: None)
  Receive Date: 20090219
  Receipt Date: 20090210
  Transmission Date: 20090719
  Serious: Yes (Death, Hospitalization, Other)
  Sender: FDA-Public Use
  Company Number: NO-ROXANE LABORATORIES, INC.-2009-RO-00139RO

PATIENT
  Age: 60 Year
  Sex: Female

DRUGS (5)
  1. LITHIUM CARBONATE [Suspect]
     Indication: BIPOLAR I DISORDER
  2. ANTIBIOTICS [Suspect]
     Indication: PNEUMONIA
     Route: 042
  3. SEVELAMER [Suspect]
     Indication: HYPERPARATHYROIDISM
  4. CINACALCET [Suspect]
     Indication: HYPERPARATHYROIDISM
  5. BIOPHOSPHONATES [Suspect]
     Indication: SKIN LESION

REACTIONS (14)
  - CALCIPHYLAXIS [None]
  - FATIGUE [None]
  - HYPERPARATHYROIDISM [None]
  - HYPERTENSION [None]
  - HYPOXIA [None]
  - IMMOBILE [None]
  - NEPHROPATHY [None]
  - PAIN [None]
  - PICKWICKIAN SYNDROME [None]
  - PNEUMONIA [None]
  - RENAL FAILURE CHRONIC [None]
  - RESPIRATORY ACIDOSIS [None]
  - SEPSIS [None]
  - TYPE 2 DIABETES MELLITUS [None]
